FAERS Safety Report 17764219 (Version 3)
Quarter: 2020Q3

REPORT INFORMATION
  Report Type: Spontaneous
  Country: ES (occurrence: ES)
  Receive Date: 20200511
  Receipt Date: 20200801
  Transmission Date: 20201102
  Serious: Yes (Hospitalization, Other)
  Sender: FDA-Public Use
  Company Number: ES-AUROBINDO-AUR-APL-2020-016523

PATIENT
  Age: 46 Year
  Sex: Male

DRUGS (7)
  1. LEVOFLOXACIN AUROVITAS 500 MG FILM COATED TABLET EFG [Suspect]
     Active Substance: LEVOFLOXACIN
     Indication: COUGH
  2. PARACETAMOL [Concomitant]
     Active Substance: ACETAMINOPHEN
     Indication: COUGH
  3. PARACETAMOL [Concomitant]
     Active Substance: ACETAMINOPHEN
     Indication: PRODUCTIVE COUGH
  4. PARACETAMOL [Concomitant]
     Active Substance: ACETAMINOPHEN
     Indication: PYREXIA
     Dosage: 1 GRAM, 3 TIMES A DAY
     Route: 048
  5. LEVOFLOXACIN AUROVITAS 500 MG FILM COATED TABLET EFG [Suspect]
     Active Substance: LEVOFLOXACIN
     Indication: PRODUCTIVE COUGH
  6. LEVOFLOXACIN AUROVITAS 500 MG FILM COATED TABLET EFG [Suspect]
     Active Substance: LEVOFLOXACIN
     Indication: COVID-19
  7. LEVOFLOXACIN AUROVITAS 500 MG FILM COATED TABLET EFG [Suspect]
     Active Substance: LEVOFLOXACIN
     Indication: PYREXIA
     Dosage: 500 MILLIGRAM, ONCE A DAY
     Route: 048
     Dates: start: 20200328, end: 20200328

REACTIONS (10)
  - Insomnia [Not Recovered/Not Resolved]
  - Anxiety [Unknown]
  - Dizziness [Not Recovered/Not Resolved]
  - Stress [Unknown]
  - Illness [Unknown]
  - Palpitations [Not Recovered/Not Resolved]
  - Fatigue [Unknown]
  - COVID-19 pneumonia [Recovered/Resolved]
  - Diarrhoea [Unknown]
  - COVID-19 [Recovered/Resolved]

NARRATIVE: CASE EVENT DATE: 20200328
